FAERS Safety Report 8415739-0 (Version None)
Quarter: 2012Q2

REPORT INFORMATION
  Report Type: 
  Country: None (occurrence: None)
  Receive Date: 20120606
  Receipt Date: 20110909
  Transmission Date: 20120825
  Serious: Yes (Other)
  Sender: FDA-Public Use
  Company Number: CZ-ASTELLAS-2011EU000869

PATIENT
  Sex: Female

DRUGS (1)
  1. PROTOPIC [Suspect]
     Dosage: UNK
     Route: 003
     Dates: start: 20100901, end: 20110215

REACTIONS (2)
  - MATERNAL EXPOSURE DURING PREGNANCY [None]
  - ABORTION INDUCED [None]
